FAERS Safety Report 4356486-4 (Version None)
Quarter: 2004Q2

REPORT INFORMATION
  Report Type: 
  Country: None (occurrence: None)
  Receive Date: 20040507
  Receipt Date: 20040423
  Transmission Date: 20050107
  Serious: Yes (Life-Threatening, Hospitalization)
  Sender: FDA-Public Use
  Company Number: 2004BL002961

PATIENT
  Age: 19 Year
  Sex: Female
  Weight: 62 kg

DRUGS (7)
  1. ALBUTEROL SULFATE [Suspect]
     Indication: STATUS ASTHMATICUS
     Dosage: 12 MG; EVERY HOUR; INHALATION
     Route: 055
     Dates: start: 20040411, end: 20040420
  2. LEVAQUIN [Concomitant]
     Indication: STATUS ASTHMATICUS
  3. CISATRACURIUM [Concomitant]
  4. PROPOFOL [Concomitant]
  5. HEPARIN [Concomitant]
  6. FENTANYL [Concomitant]
  7. DEXAMETHASONE [Concomitant]

REACTIONS (2)
  - DRUG INEFFECTIVE [None]
  - PHARMACEUTICAL PRODUCT COMPLAINT [None]
